FAERS Safety Report 8399128-3 (Version None)
Quarter: 2012Q2

REPORT INFORMATION
  Report Type: 
  Country: None (occurrence: None)
  Receive Date: 20120531
  Receipt Date: 20120522
  Transmission Date: 20120825
  Serious: Yes (Other)
  Sender: FDA-Public Use
  Company Number: US-FRI-1000029996

PATIENT
  Age: 58 Year
  Sex: Female

DRUGS (6)
  1. VIIBRYD [Suspect]
     Dosage: 20 MG
     Dates: start: 20120321, end: 20120327
  2. VIIBRYD [Suspect]
     Dosage: 10 MG
     Dates: start: 20120101, end: 20120101
  3. VIIBRYD [Suspect]
     Dosage: 20 MG
     Dates: start: 20120101, end: 20120101
  4. ADDERALL 5 [Concomitant]
     Indication: FATIGUE
     Dosage: 20 MG BID-TID
     Dates: start: 20110101
  5. VIIBRYD [Suspect]
     Indication: MAJOR DEPRESSION
     Dosage: 10 MG
     Dates: start: 20120314, end: 20120320
  6. VIIBRYD [Suspect]
     Dosage: 40 MG
     Dates: start: 20120328, end: 20120101

REACTIONS (2)
  - MALAISE [None]
  - SUICIDAL IDEATION [None]
